FAERS Safety Report 5913688-0 (Version None)
Quarter: 2008Q4

REPORT INFORMATION
  Report Type: 
  Country: None (occurrence: None)
  Receive Date: 20081009
  Receipt Date: 20081002
  Transmission Date: 20090506
  Serious: Yes (Other)
  Sender: FDA-Public Use
  Company Number: US-GILEAD-2008-0018386

PATIENT
  Age: 45 Year
  Sex: Female
  Weight: 54.48 kg

DRUGS (1)
  1. LETAIRIS [Suspect]
     Indication: PULMONARY HYPERTENSION
     Route: 048
     Dates: start: 20080507

REACTIONS (2)
  - DIZZINESS [None]
  - SYNCOPE [None]
